FAERS Safety Report 8424568 (Version 9)
Quarter: 2013Q1

REPORT INFORMATION
  Report Type: Spontaneous
  Country: GB (occurrence: GB)
  Receive Date: 20120224
  Receipt Date: 20130215
  Transmission Date: 20140127
  Serious: Yes (Hospitalization)
  Sender: FDA-Public Use
  Company Number: GB-SANOFI-AVENTIS-2012SA009544

PATIENT
  Age: 68 Year
  Sex: Female

DRUGS (6)
  1. RIFAMPICIN [Suspect]
     Indication: TUBERCULOSIS
     Route: 048
     Dates: start: 20120127, end: 20120129
  2. RIFAMPICIN [Interacting]
     Indication: TUBERCULOSIS
     Route: 048
     Dates: start: 20120207
  3. ANTINEOPLASTIC AGENTS [Interacting]
     Indication: BREAST CANCER METASTATIC
     Route: 048
     Dates: start: 20111130
  4. ANTINEOPLASTIC AGENTS [Interacting]
     Indication: BREAST CANCER METASTATIC
     Route: 048
     Dates: end: 20120203
  5. ANTINEOPLASTIC AGENTS [Interacting]
     Indication: BREAST CANCER METASTATIC
     Dosage: PHARMACEUTICALS DOSAGE FORM: 245?CUMULATIVE DOSE: 60000 MG?DATE OF LAST ADMINISTRATION: 02-FEB-2012
     Route: 048
     Dates: start: 20120216
  6. ETHAMBUTOL [Suspect]
     Indication: TUBERCULOSIS
     Route: 048
     Dates: start: 20120127, end: 20120129

REACTIONS (5)
  - Confusional state [Recovered/Resolved]
  - Drug interaction [Unknown]
  - Dyspnoea [Recovered/Resolved]
  - Muscular weakness [Recovered/Resolved]
  - Coordination abnormal [Recovered/Resolved]
